FAERS Safety Report 12447626 (Version 1)
Quarter: 2016Q2

REPORT INFORMATION
  Report Type: Spontaneous
  Country: US (occurrence: None)
  Receive Date: 20160607
  Receipt Date: 20160607
  Transmission Date: 20160815
  Serious: Yes (Hospitalization)
  Sender: FDA-Public Use
  Company Number: None

PATIENT
  Age: 60 Year
  Sex: Male
  Weight: 72.2 kg

DRUGS (23)
  1. PROPANOLOL [Concomitant]
     Active Substance: PROPRANOLOL HYDROCHLORIDE
  2. TAMSULOSIN [Concomitant]
     Active Substance: TAMSULOSIN
  3. NOVOLOG [Concomitant]
     Active Substance: INSULIN ASPART
  4. ZOLPIDEM [Concomitant]
     Active Substance: ZOLPIDEM\ZOLPIDEM TARTRATE
  5. GABAPENTIN. [Concomitant]
     Active Substance: GABAPENTIN
  6. SOFOSBUVIR 400MG GILEAD [Suspect]
     Active Substance: SOFOSBUVIR
     Indication: HEPATITIS C
     Route: 048
     Dates: start: 20160223
  7. DOCUSATE SODIUM. [Concomitant]
     Active Substance: DOCUSATE SODIUM
  8. ISOPHANE INSULIN [Concomitant]
     Active Substance: INSULIN NOS
  9. ASPIRIN. [Concomitant]
     Active Substance: ASPIRIN
  10. CHOLECALCIFEROL [Concomitant]
     Active Substance: CHOLECALCIFEROL
  11. CLONIDINE. [Suspect]
     Active Substance: CLONIDINE
  12. OXYCODONE [Suspect]
     Active Substance: OXYCODONE
  13. CAPSAICIN. [Concomitant]
     Active Substance: CAPSAICIN
  14. NALOXONE [Suspect]
     Active Substance: NALOXONE
  15. DACLATASVIR 60MG BMS [Suspect]
     Active Substance: DACLATASVIR
     Indication: HEPATITIS C
     Route: 048
     Dates: start: 20160223
  16. SENNA LAXATIVE [Concomitant]
     Active Substance: SENNOSIDES
  17. AMLODIPINE [Concomitant]
     Active Substance: AMLODIPINE BESYLATE
  18. VITAMIN D [Concomitant]
     Active Substance: CHOLECALCIFEROL
  19. GENERLAC [Suspect]
     Active Substance: LACTULOSE
  20. LOSARTAN. [Concomitant]
     Active Substance: LOSARTAN
  21. COMBIVENT [Concomitant]
     Active Substance: ALBUTEROL SULFATE\IPRATROPIUM BROMIDE
  22. LATANOPROST. [Concomitant]
     Active Substance: LATANOPROST
  23. LASIX [Concomitant]
     Active Substance: FUROSEMIDE

REACTIONS (3)
  - Hypoglycaemia [None]
  - Anxiety [None]
  - Slow speech [None]

NARRATIVE: CASE EVENT DATE: 20160328
